FAERS Safety Report 13616200 (Version 1)
Quarter: 2017Q2

REPORT INFORMATION
  Report Type: Spontaneous
  Country: US (occurrence: US)
  Receive Date: 20170606
  Receipt Date: 20170606
  Transmission Date: 20170830
  Serious: No
  Sender: FDA-Public Use
  Company Number: US-PFIZER INC-2017241937

PATIENT
  Age: 20 Year
  Sex: Male

DRUGS (3)
  1. ZITHROMAX [Suspect]
     Active Substance: AZITHROMYCIN DIHYDRATE
     Indication: PHARYNGITIS STREPTOCOCCAL
     Dosage: 500 MG (TWO 250 MG TABLETS), 1X/DAY
     Route: 048
     Dates: start: 20170526
  2. IBUPROFEN. [Concomitant]
     Active Substance: IBUPROFEN
     Dosage: 200 OR 400, DAILY
     Route: 048
  3. IBUPROFEN. [Concomitant]
     Active Substance: IBUPROFEN
     Indication: ARTHRALGIA
     Dosage: ^OVER 2000 OR 2500MG^, DAILY
     Route: 048
     Dates: start: 20170526

REACTIONS (9)
  - Condition aggravated [Unknown]
  - Myalgia [Unknown]
  - Vomiting [Unknown]
  - Weight decreased [Unknown]
  - General physical health deterioration [Unknown]
  - Feeding disorder [Unknown]
  - Nausea [Unknown]
  - Bedridden [Unknown]
  - Pharyngitis streptococcal [Unknown]

NARRATIVE: CASE EVENT DATE: 20170528
